FAERS Safety Report 10087483 (Version 1)
Quarter: 2014Q2

REPORT INFORMATION
  Report Type: Spontaneous
  Country: US (occurrence: US)
  Receive Date: 20140418
  Receipt Date: 20140418
  Transmission Date: 20141212
  Serious: No
  Sender: FDA-Public Use
  Company Number: US-PURDUE-USA-2013-0108053

PATIENT
  Sex: Male

DRUGS (9)
  1. OXYCONTIN (NDA 22-272) [Suspect]
     Indication: PAIN
     Dosage: 30 MG, BID
     Route: 048
  2. HUMIRA [Suspect]
     Indication: RHEUMATOID ARTHRITIS
     Dosage: 40 MG, UNK
     Route: 030
  3. OXYCODONE HCL IR CAPSULES [Suspect]
     Indication: BREAKTHROUGH PAIN
     Dosage: 10 MG, PRN
  4. PLAQUENIL                          /00072602/ [Concomitant]
     Indication: RHEUMATOID ARTHRITIS
     Dosage: 400 MG, UNK
  5. GEMFIBROZIL [Concomitant]
     Indication: BLOOD CHOLESTEROL
     Dosage: 100 MG, BID
  6. LANSOPRAZOLE [Concomitant]
     Indication: ABDOMINAL DISCOMFORT
     Dosage: 30 MG, UNK
  7. ZOLOFT [Concomitant]
     Indication: DEPRESSION
     Dosage: 200 MG, UNK
  8. CLONAZEPAM [Concomitant]
     Indication: SLEEP APNOEA SYNDROME
     Dosage: 1.5 MG, UNK
  9. PRAVASTATIN [Concomitant]
     Indication: BLOOD TRIGLYCERIDES
     Dosage: 40 MG, UNK

REACTIONS (1)
  - Fatigue [Unknown]
